FAERS Safety Report 9472476 (Version 1)
Quarter: 2013Q3

REPORT INFORMATION
  Report Type: Spontaneous
  Country: US (occurrence: None)
  Receive Date: 20130821
  Receipt Date: 20130821
  Transmission Date: 20140515
  Serious: No
  Sender: FDA-Public Use
  Company Number: None

PATIENT
  Age: 23 Year
  Sex: Male
  Weight: 83.9 kg

DRUGS (1)
  1. ZYPREXA [Suspect]
     Dosage: 2 TABS (20 MG), QD, ORAL
     Route: 048
     Dates: start: 20130809, end: 20130810

REACTIONS (1)
  - Trismus [None]
